FAERS Safety Report 8356772-7 (Version None)
Quarter: 2012Q2

REPORT INFORMATION
  Report Type: 
  Country: None (occurrence: None)
  Receive Date: 20120511
  Receipt Date: 20120511
  Transmission Date: 20120825
  Serious: Yes (Other)
  Sender: FDA-Public Use
  Company Number: None

PATIENT
  Sex: Female
  Weight: 51.7101 kg

DRUGS (1)
  1. CLINDAMYCIN [Suspect]
     Indication: VAGINAL INFECTION
     Dosage: 20 4 TIMES A DAY PO
     Route: 048
     Dates: start: 20120420, end: 20120509

REACTIONS (4)
  - DEFAECATION URGENCY [None]
  - ABDOMINAL PAIN [None]
  - DIARRHOEA [None]
  - FREQUENT BOWEL MOVEMENTS [None]
